FAERS Safety Report 10868510 (Version 1)
Quarter: 2015Q1

REPORT INFORMATION
  Report Type: Spontaneous
  Country: FR (occurrence: FR)
  Receive Date: 20150225
  Receipt Date: 20150225
  Transmission Date: 20150721
  Serious: Yes (Hospitalization)
  Sender: FDA-Public Use
  Company Number: FR-SA-2015SA021153

PATIENT
  Age: 78 Year
  Sex: Female

DRUGS (9)
  1. PREVISCAN [Suspect]
     Active Substance: FLUINDIONE
     Indication: CARDIAC DISORDER
     Dosage: DOSE:IN ORDER TO GET TARGET INR BETWEEN 2-3
     Route: 048
     Dates: end: 20141226
  2. ATORVASTATIN [Concomitant]
     Active Substance: ATORVASTATIN
  3. PLAVIX [Suspect]
     Active Substance: CLOPIDOGREL BISULFATE
     Indication: CARDIAC DISORDER
     Route: 048
  4. FUROSEMIDE. [Concomitant]
     Active Substance: FUROSEMIDE
  5. BISOPROLOL [Concomitant]
     Active Substance: BISOPROLOL
  6. EUPRESSYL [Concomitant]
     Active Substance: URAPIDIL
  7. ALPRAZOLAM. [Concomitant]
     Active Substance: ALPRAZOLAM
  8. AMLODIPINE [Concomitant]
     Active Substance: AMLODIPINE BESYLATE
  9. ESOMEPRAZOLE [Concomitant]
     Active Substance: ESOMEPRAZOLE

REACTIONS (4)
  - International normalised ratio increased [Recovered/Resolved]
  - Haemarthrosis [Recovered/Resolved]
  - Anaemia [Recovered/Resolved]
  - Muscle haemorrhage [Recovering/Resolving]

NARRATIVE: CASE EVENT DATE: 201412
